FAERS Safety Report 18767530 (Version 1)
Quarter: 2021Q1

REPORT INFORMATION
  Report Type: Spontaneous
  Country: GB (occurrence: GB)
  Receive Date: 20210121
  Receipt Date: 20210121
  Transmission Date: 20210419
  Serious: No
  Sender: FDA-Public Use
  Company Number: GB-GW PHARMA-202101GBGW00126

PATIENT

DRUGS (1)
  1. EPIDYOLEX [Suspect]
     Active Substance: CANNABIDIOL
     Dosage: 800 MILLIGRAM, BID
     Route: 048

REACTIONS (3)
  - Product use complaint [Unknown]
  - Illness [Unknown]
  - Therapeutic response unexpected [Unknown]
